FAERS Safety Report 8401967-7 (Version None)
Quarter: 2012Q2

REPORT INFORMATION
  Report Type: 
  Country: None (occurrence: None)
  Receive Date: 20120601
  Receipt Date: 20120528
  Transmission Date: 20120825
  Serious: Yes (Other)
  Sender: FDA-Public Use
  Company Number: BR-PFIZER INC-2012128705

PATIENT
  Age: 77 Year
  Sex: Female
  Weight: 51 kg

DRUGS (4)
  1. LIPITOR [Suspect]
     Indication: CARDIAC DISORDER
     Dosage: 10 MG, 1X/DAY
     Route: 048
     Dates: start: 20060101
  2. OLCADIL [Concomitant]
     Indication: ANXIETY
     Dosage: UNK
     Dates: start: 20020101
  3. LIMBITROL [Concomitant]
     Indication: DEPRESSION
     Dosage: UNK
     Dates: start: 20090101
  4. LIMBITROL [Concomitant]
     Indication: SLEEP DISORDER

REACTIONS (2)
  - HYPERTENSION [None]
  - DIABETES MELLITUS [None]
